FAERS Safety Report 10459250 (Version 1)
Quarter: 2014Q3

REPORT INFORMATION
  Report Type: Spontaneous
  Country: RU (occurrence: RU)
  Receive Date: 20140917
  Receipt Date: 20140917
  Transmission Date: 20150326
  Serious: Yes (Hospitalization, Other)
  Sender: FDA-Public Use
  Company Number: RU-PFIZER INC-2014252451

PATIENT
  Age: 62 Year
  Sex: Female

DRUGS (1)
  1. SUTENT [Suspect]
     Active Substance: SUNITINIB MALATE
     Indication: METASTATIC RENAL CELL CARCINOMA
     Dosage: 50 MG, NO28 CYCLIC (4/2)
     Route: 048
     Dates: start: 2013, end: 201309

REACTIONS (5)
  - Generalised oedema [Recovering/Resolving]
  - Anaemia [Recovering/Resolving]
  - Proteinuria [Recovering/Resolving]
  - Thrombocytopenia [Recovering/Resolving]
  - Hypoproteinaemia [Recovering/Resolving]

NARRATIVE: CASE EVENT DATE: 201409
